FAERS Safety Report 9485829 (Version 1)
Quarter: 2013Q3

REPORT INFORMATION
  Report Type: Spontaneous
  Country: US (occurrence: None)
  Receive Date: 20130809
  Receipt Date: 20130809
  Transmission Date: 20140515
  Serious: Yes (Hospitalization, Other)
  Sender: FDA-Public Use
  Company Number: 2012033361

PATIENT
  Age: 17 Year
  Sex: Female
  Weight: 128.37 kg

DRUGS (27)
  1. HIZENTRA [Suspect]
     Indication: HYPOGAMMAGLOBULINAEMIA
     Dosage: 1X/WEEK, 4 G ON 4-5 SITES OVER 1-2 HOURS)
     Route: 058
  2. SPRINTEC (CILEST) [Concomitant]
  3. LORAZEPAM (LORAZEPAM) [Concomitant]
  4. DIPHENHYDRAMINE (DIPHENHYDRAMINE) [Concomitant]
  5. LIDOCAINE PRILOCAINE (EMLA /00675501/) [Concomitant]
  6. EPINEPHRINE (EPINEPHRINE) [Concomitant]
  7. TRAZODONE [Concomitant]
  8. DDAVP (DESMOPRESSIN) [Concomitant]
  9. CLONIDINE [Concomitant]
  10. ONDASETRON [Concomitant]
  11. METOCLOPRAMIDE [Concomitant]
  12. METFORMIN [Concomitant]
  13. ADVAIR (SERETIDE /01420901/) [Concomitant]
  14. ACETAMINOPHEN (PARACETAMOL) [Concomitant]
  15. PROMETHAZINE [Concomitant]
  16. ABILIFY (ARIPIPRAZOLE) [Concomitant]
  17. NITROFURANTOIN [Concomitant]
  18. OMEPRAZOLE [Concomitant]
  19. VITAMIN C [Concomitant]
  20. SERTRALINE [Concomitant]
  21. MOTRIN [Concomitant]
  22. FLONASE (FLUTICASONE PROPIONATE) [Concomitant]
  23. SINGULAIR [Concomitant]
  24. LISINOPRIL [Concomitant]
  25. MIRALAX [Concomitant]
  26. VITAMIN B (VITAMIN B) [Concomitant]
  27. ALBUTEROL (SALBUTAMOL) [Concomitant]

REACTIONS (7)
  - Urinary tract infection [None]
  - Kidney infection [None]
  - Abdominal pain lower [None]
  - Back pain [None]
  - Infusion site pain [None]
  - Hypertension [None]
  - Pain [None]
